FAERS Safety Report 19705204 (Version 1)
Quarter: 2021Q3

REPORT INFORMATION
  Report Type: Spontaneous
  Country: US (occurrence: US)
  Receive Date: 20210814
  Receipt Date: 20210814
  Transmission Date: 20211014
  Serious: Yes (Hospitalization)
  Sender: FDA-Public Use
  Company Number: None

PATIENT
  Sex: Male
  Weight: 111.4 kg

DRUGS (2)
  1. ALIMTA [Suspect]
     Active Substance: PEMETREXED DISODIUM
  2. CARBOPLATIN. [Suspect]
     Active Substance: CARBOPLATIN

REACTIONS (17)
  - Dizziness [None]
  - Haematochezia [None]
  - Klebsiella infection [None]
  - Neutropenic sepsis [None]
  - Nausea [None]
  - Pancytopenia [None]
  - Vomiting [None]
  - Hypophagia [None]
  - Haemorrhoids [None]
  - Diverticulum [None]
  - Hypotension [None]
  - Diarrhoea [None]
  - Lower gastrointestinal haemorrhage [None]
  - Vascular calcification [None]
  - Blood pressure increased [None]
  - Dyspnoea exertional [None]
  - Hyponatraemia [None]

NARRATIVE: CASE EVENT DATE: 20210720
